FAERS Safety Report 9391172 (Version 2)
Quarter: 2013Q4

REPORT INFORMATION
  Report Type: Report from Study
  Country: BR (occurrence: BR)
  Receive Date: 20130709
  Receipt Date: 20131127
  Transmission Date: 20140711
  Serious: Yes (Other)
  Sender: FDA-Public Use
  Company Number: BR-US-EMD SERONO, INC.-7222551

PATIENT
  Age: 62 Year
  Sex: Female

DRUGS (5)
  1. REBIF [Suspect]
     Indication: RELAPSING-REMITTING MULTIPLE SCLEROSIS
     Route: 058
     Dates: start: 20080313
  2. CIPROFIBRATE [Concomitant]
     Indication: BLOOD CHOLESTEROL ABNORMAL
  3. MANTIDAN [Concomitant]
     Indication: PRODUCT USED FOR UNKNOWN INDICATION
  4. LOSARTAN [Concomitant]
     Indication: HYPERTENSION
  5. CARBAMAZEPINE [Concomitant]
     Indication: CONVULSION

REACTIONS (2)
  - Gamma-glutamyltransferase increased [Recovering/Resolving]
  - Constipation [Not Recovered/Not Resolved]
